FAERS Safety Report 4795786-0 (Version None)
Quarter: 2005Q3

REPORT INFORMATION
  Report Type: 
  Country: None (occurrence: None)
  Receive Date: 20050916
  Receipt Date: 20041116
  Transmission Date: 20060218
  Serious: Yes (Hospitalization)
  Sender: FDA-Public Use
  Company Number: US-JNJFOC-20040704554

PATIENT
  Age: 46 Year
  Sex: Female
  Weight: 63.5036 kg

DRUGS (11)
  1. TOPAMAX [Suspect]
     Indication: PAIN PROPHYLAXIS
     Dosage: 100 TO 200 MG TAKEN AT BEDTIME; SEE IMAGE
     Dates: start: 20030123
  2. TOPAMAX [Suspect]
     Indication: PAIN PROPHYLAXIS
     Dosage: 100 TO 200 MG TAKEN AT BEDTIME; SEE IMAGE
     Dates: start: 20030306
  3. TOPAMAX [Suspect]
     Indication: PAIN PROPHYLAXIS
     Dosage: 100 TO 200 MG TAKEN AT BEDTIME; SEE IMAGE
     Dates: start: 20030403
  4. TOPAMAX [Suspect]
     Indication: PAIN PROPHYLAXIS
     Dosage: 100 TO 200 MG TAKEN AT BEDTIME; SEE IMAGE
     Dates: start: 20030429
  5. TOPAMAX [Suspect]
     Indication: PAIN PROPHYLAXIS
     Dosage: 100 TO 200 MG TAKEN AT BEDTIME; SEE IMAGE
     Dates: start: 20030602
  6. TOPAMAX [Suspect]
     Indication: PAIN PROPHYLAXIS
     Dosage: 100 TO 200 MG TAKEN AT BEDTIME; SEE IMAGE
     Dates: start: 20030705
  7. TOPAMAX [Suspect]
     Indication: PAIN PROPHYLAXIS
     Dosage: 100 TO 200 MG TAKEN AT BEDTIME; SEE IMAGE
     Dates: start: 20030813
  8. AUGMENTIN '125' [Concomitant]
  9. PREVACID [Concomitant]
  10. FE SULFATE (FERROUS SULFATE) [Concomitant]
  11. NORVASC [Concomitant]

REACTIONS (1)
  - ANAEMIA [None]
